FAERS Safety Report 9306212 (Version 2)
Quarter: 2013Q4

REPORT INFORMATION
  Report Type: Spontaneous
  Country: FR (occurrence: FR)
  Receive Date: 20130523
  Receipt Date: 20131127
  Transmission Date: 20140711
  Serious: Yes (Hospitalization)
  Sender: FDA-Public Use
  Company Number: FR-INCYTE CORPORATION-2013IN000992

PATIENT
  Age: 68 Year
  Sex: Female

DRUGS (7)
  1. JAKAVI [Suspect]
     Indication: MYELOPROLIFERATIVE DISORDER
     Dosage: 20 MG, BID
     Route: 048
  2. JAKAVI [Suspect]
     Dosage: 15 MG, BID
     Route: 048
     Dates: start: 20130329, end: 20130415
  3. JAKAVI [Suspect]
     Dosage: 10 MG, BID
     Route: 048
     Dates: start: 20130501, end: 201307
  4. JAKAVI [Suspect]
     Dosage: 5 MG, BID
     Route: 048
     Dates: start: 20130730
  5. EXJADE [Suspect]
     Indication: MYELOPROLIFERATIVE DISORDER
     Dosage: UNK, UNK, UNK
     Route: 048
     Dates: end: 201307
  6. BINOCRIT [Concomitant]
     Dosage: UNK
     Dates: end: 201307
  7. LEVOTHYROX [Concomitant]

REACTIONS (3)
  - Pancreatitis acute [Recovered/Resolved]
  - Hepatocellular injury [Recovered/Resolved]
  - Renal failure acute [Recovered/Resolved]
